FAERS Safety Report 8463048-6 (Version None)
Quarter: 2012Q2

REPORT INFORMATION
  Report Type: 
  Country: None (occurrence: None)
  Receive Date: 20120625
  Receipt Date: 20120621
  Transmission Date: 20120825
  Serious: No
  Sender: FDA-Public Use
  Company Number: US-BAYER-2012-062153

PATIENT
  Sex: Male

DRUGS (2)
  1. GADAVIST [Suspect]
     Indication: SCAN
     Dosage: 13 ML, ONCE
     Route: 042
     Dates: start: 20120614, end: 20120614
  2. GADAVIST [Suspect]
     Indication: SCAN BRAIN
     Dosage: 13 ML, ONCE
     Route: 042

REACTIONS (3)
  - PAIN IN EXTREMITY [None]
  - RASH [None]
  - OEDEMA PERIPHERAL [None]
